FAERS Safety Report 6125465-9 (Version None)
Quarter: 2009Q1

REPORT INFORMATION
  Report Type: 
  Country: None (occurrence: None)
  Receive Date: 20090320
  Receipt Date: 20090310
  Transmission Date: 20090719
  Serious: Yes (Hospitalization, Other)
  Sender: FDA-Public Use
  Company Number: PHHY2009DE09347

PATIENT
  Age: 69 Year
  Sex: Female

DRUGS (5)
  1. EXFORGE [Interacting]
     Indication: HYPERTENSION
     Dosage: 1 TABLET (160 MG VALSARTAN/10 MGAMLODIPINE), DAILY
     Route: 048
  2. BELOC ZOK [Suspect]
     Indication: HYPERTENSION
     Dosage: 142.5 MG DAILY
     Route: 048
     Dates: end: 20090101
  3. DOXAZOSIN MESYLATE [Interacting]
     Indication: HYPERTENSION
     Dosage: 2 MG, DAILY
     Route: 048
  4. RAMIPRIL [Interacting]
     Indication: HYPERTENSION
     Dosage: 5 MG, BID
     Route: 048
  5. ACETYLSALICYLIC ACID [Concomitant]
     Indication: PERIPHERAL ARTERIAL OCCLUSIVE DISEASE
     Dosage: 100 MG, DAILY
     Route: 048

REACTIONS (3)
  - DRUG INTERACTION [None]
  - SINUS BRADYCARDIA [None]
  - SYNCOPE [None]
